FAERS Safety Report 19364064 (Version 1)
Quarter: 2021Q2

REPORT INFORMATION
  Report Type: Spontaneous
  Country: GR (occurrence: GR)
  Receive Date: 20210603
  Receipt Date: 20210603
  Transmission Date: 20210717
  Serious: Yes (Hospitalization)
  Sender: FDA-Public Use
  Company Number: GR-YILING-GR-2021-YPL-00041

PATIENT

DRUGS (2)
  1. CIPROFLOXACIN HYDROCHLORIDE. [Suspect]
     Active Substance: CIPROFLOXACIN HYDROCHLORIDE
     Indication: URINARY TRACT INFECTION
  2. NOT APPLICABLE [Interacting]
     Active Substance: HYOSCYAMINE SULFATE
     Indication: HENOCH-SCHONLEIN PURPURA
     Route: 042

REACTIONS (1)
  - Henoch-Schonlein purpura [Recovering/Resolving]
